FAERS Safety Report 5388613-4 (Version None)
Quarter: 2007Q3

REPORT INFORMATION
  Report Type: 
  Country: None (occurrence: None)
  Receive Date: 20070712
  Receipt Date: 20070626
  Transmission Date: 20080115
  Serious: Yes (Hospitalization)
  Sender: FDA-Public Use
  Company Number: S07-GER-02959-01

PATIENT
  Age: 47 Year
  Sex: Male

DRUGS (3)
  1. CITALOPRAM HYDROBROMIDE [Suspect]
     Dosage: 10 MG QD PO
     Route: 048
     Dates: start: 20070301
  2. CHLORPROTHIXENE [Suspect]
     Dosage: 100 MG QD PO
     Route: 048
     Dates: start: 20060101, end: 20070323
  3. LAMOTRIGIN (LAMOTRIGINE) [Concomitant]

REACTIONS (2)
  - RESTLESSNESS [None]
  - TARDIVE DYSKINESIA [None]
